FAERS Safety Report 20075206 (Version 3)
Quarter: 2022Q1

REPORT INFORMATION
  Report Type: Spontaneous
  Country: PT (occurrence: None)
  Receive Date: 20211116
  Receipt Date: 20220105
  Transmission Date: 20220423
  Serious: Yes (Other)
  Sender: FDA-Public Use
  Company Number: PT-009507513-2110PRT009061

PATIENT
  Age: 68 Year
  Sex: Female
  Weight: 73 kg

DRUGS (27)
  1. CARBOPLATIN [Suspect]
     Active Substance: CARBOPLATIN
     Indication: Product used for unknown indication
     Dosage: CYCLE 3 WITH CARBOPLATIN AND PACLITAXEL (CHEMOTHERAPY) AND PEMBROLIZUMAB
     Route: 065
     Dates: start: 20210519
  2. CARBOPLATIN [Suspect]
     Active Substance: CARBOPLATIN
     Dosage: CYCLE 7 WITH CARBOPLATIN AND PACLITAXEL (CHEMOTHERAPY) AND PEMBROLIZUMAB
     Route: 065
     Dates: start: 20210929
  3. CARBOPLATIN [Suspect]
     Active Substance: CARBOPLATIN
     Dosage: CYCLE 5 WITH CARBOPLATIN AND PACLITAXEL (CHEMOTHERAPY) AND PEMBROLIZUMAB
     Route: 065
     Dates: start: 20210818
  4. CARBOPLATIN [Suspect]
     Active Substance: CARBOPLATIN
     Dosage: CYCLE 8 WITH CARBOPLATIN AND PACLITAXEL (CHEMOTHERAPY) AND PEMBROLIZUMAB
     Route: 065
     Dates: start: 20211020
  5. CARBOPLATIN [Suspect]
     Active Substance: CARBOPLATIN
     Dosage: CYCLE 2 WITH CARBOPLATIN AND PACLITAXEL (CHEMOTHERAPY) AND PEMBROLIZUMAB
     Route: 065
     Dates: start: 20210430
  6. CARBOPLATIN [Suspect]
     Active Substance: CARBOPLATIN
     Dosage: CYCLE 1 WITH ONLY CHEMOTHERAPY
     Route: 065
     Dates: start: 20210407
  7. CARBOPLATIN [Suspect]
     Active Substance: CARBOPLATIN
     Dosage: CYCLE 4 WITH CARBOPLATIN AND PACLITAXEL (CHEMOTHERAPY) AND PEMBROLIZUMAB
     Route: 065
     Dates: start: 20210727
  8. CARBOPLATIN [Suspect]
     Active Substance: CARBOPLATIN
     Dosage: 10-NOV-2021: CYCLE 9 CARBOPLATIN (+) PACLITAXEL (CHEMOTHERAPY) AND PEMBROLIZUMAB (SCHEDULED - HAD CT
     Route: 065
  9. CARBOPLATIN [Suspect]
     Active Substance: CARBOPLATIN
     Dosage: CYCLE 6 WITH CARBOPLATIN AND PACLITAXEL (CHEMOTHERAPY) AND PEMBROLIZUMAB
     Route: 065
     Dates: start: 20210908
  10. PACLITAXEL [Suspect]
     Active Substance: PACLITAXEL
     Indication: Product used for unknown indication
     Dosage: CYCLE 3 WITH CARBOPLATIN AND PACLITAXEL (CHEMOTHERAPY) AND PEMBROLIZUMAB
     Route: 065
     Dates: start: 20210519
  11. PACLITAXEL [Suspect]
     Active Substance: PACLITAXEL
     Dosage: CYCLE 7 WITH CARBOPLATIN AND PACLITAXEL (CHEMOTHERAPY) AND PEMBROLIZUMAB
     Route: 065
     Dates: start: 20210929
  12. PACLITAXEL [Suspect]
     Active Substance: PACLITAXEL
     Dosage: CYCLE 5 WITH CARBOPLATIN AND PACLITAXEL (CHEMOTHERAPY) AND PEMBROLIZUMAB
     Route: 065
     Dates: start: 20210818
  13. PACLITAXEL [Suspect]
     Active Substance: PACLITAXEL
     Dosage: CYCLE 8 WITH CARBOPLATIN (+) PACLITAXEL (CHEMOTHERAPY) AND PEMBROLIZUMAB
     Route: 065
     Dates: start: 20211020
  14. PACLITAXEL [Suspect]
     Active Substance: PACLITAXEL
     Dosage: CYCLE 2 WITH CARBOPLATIN AND PACLITAXEL (CHEMOTHERAPY) AND PEMBROLIZUMAB
     Route: 065
     Dates: start: 20210430
  15. PACLITAXEL [Suspect]
     Active Substance: PACLITAXEL
     Dosage: CYCLE 1 WITH ONLY CHEMOTHERAPY
     Route: 065
     Dates: start: 20210407
  16. PACLITAXEL [Suspect]
     Active Substance: PACLITAXEL
     Dosage: CYCLE 4 WITH CARBOPLATIN AND PACLITAXEL (CHEMOTHERAPY) AND PEMBROLIZUMAB
     Route: 065
     Dates: start: 20210727
  17. PACLITAXEL [Suspect]
     Active Substance: PACLITAXEL
     Dosage: 10-NOV-2021: CYCLE 9 CARBOPLATIN (+) PACLITAXEL (CHEMOTHERAPY) AND PEMBROLIZUMAB (SCHEDULED - HAD CT
     Route: 065
  18. PACLITAXEL [Suspect]
     Active Substance: PACLITAXEL
     Dosage: CYCLE 6 WITH CARBOPLATIN AND PACLITAXEL (CHEMOTHERAPY) AND PEMBROLIZUMAB
     Route: 065
     Dates: start: 20210908
  19. PEMBROLIZUMAB [Suspect]
     Active Substance: PEMBROLIZUMAB
     Indication: Product used for unknown indication
     Dosage: 200 MILLIGRAM, Q3W; CYCLE 3 WITH CARBOPLATIN (+) PACLITAXEL (CHEMOTHERAPY) AND PEMBROLIZUMAB
     Route: 065
     Dates: start: 20210519
  20. PEMBROLIZUMAB [Suspect]
     Active Substance: PEMBROLIZUMAB
     Dosage: 10-NOV-2021: CYCLE 9 CARBOPLATIN (+) PACLITAXEL (CHEMOTHERAPY) AND PEMBROLIZUMAB (SCHEDULED - HAD CT
     Route: 065
  21. PEMBROLIZUMAB [Suspect]
     Active Substance: PEMBROLIZUMAB
     Dosage: 03-DEC-2021: RECEIVED CYCLE 10 (SCHEDULED) MAINTENANCE TREATMENT WITH PEMBROLIZUMAB.
     Route: 065
  22. PEMBROLIZUMAB [Suspect]
     Active Substance: PEMBROLIZUMAB
     Dosage: 200 MILLIGRAM, Q3W; THE CYCLE 4 WITH CARBOPLATIN (+) PACLITAXEL (CHEMOTHERAPY) AND PEMBROLIZUMAB
     Route: 065
     Dates: start: 20210727
  23. PEMBROLIZUMAB [Suspect]
     Active Substance: PEMBROLIZUMAB
     Dosage: 200 MILLIGRAM, Q3W; CYCLE 7 CARBOPLATIN (+) PACLITAXEL (CHEMOTHERAPY) AND PEMBROLIZUMAB (REPORTED AS
     Route: 065
     Dates: start: 20210929
  24. PEMBROLIZUMAB [Suspect]
     Active Substance: PEMBROLIZUMAB
     Dosage: 200 MILLIGRAM, Q3W; CYCLE 2 WITH CARBOPLATIN (+) PACLITAXEL (CHEMOTHERAPY) AND PEMBROLIZUMAB
     Route: 065
     Dates: start: 20210430
  25. PEMBROLIZUMAB [Suspect]
     Active Substance: PEMBROLIZUMAB
     Dosage: 200 MILLIGRAM, Q3W; CYCLE 6 CARBOPLATIN (+) PACLITAXEL (CHEMOTHERAPY) AND PEMBROLIZUMAB (REPORTED AS
     Route: 065
     Dates: start: 20210908
  26. PEMBROLIZUMAB [Suspect]
     Active Substance: PEMBROLIZUMAB
     Dosage: 200 MILLIGRAM, Q3W; CYCLE 8 CARBOPLATIN (+) PACLITAXEL (CHEMOTHERAPY) AND PEMBROLIZUMAB (REPORTED AS
     Route: 065
     Dates: start: 20211020
  27. PEMBROLIZUMAB [Suspect]
     Active Substance: PEMBROLIZUMAB
     Dosage: 200 MILLIGRAM, Q3W; CYCLE 5 CARBOPLATIN (+) PACLITAXEL (CHEMOTHERAPY) AND PEMBROLIZUMAB (REPORTED AS
     Route: 065
     Dates: start: 20210818

REACTIONS (16)
  - Malignant neoplasm progression [Unknown]
  - Inappropriate schedule of product administration [Unknown]
  - Inappropriate schedule of product administration [Unknown]
  - Immune-mediated hypothyroidism [Recovered/Resolved]
  - Inappropriate schedule of product administration [Unknown]
  - Pulmonary granuloma [Unknown]
  - Circumstance or information capable of leading to medication error [Unknown]
  - Hepatic calcification [Unknown]
  - Lymphadenopathy [Unknown]
  - Product use in unapproved indication [Unknown]
  - Cardiomegaly [Unknown]
  - Biliary cyst [Unknown]
  - Pulmonary calcification [Unknown]
  - Aortic arteriosclerosis [Unknown]
  - Inappropriate schedule of product administration [Unknown]
  - Gynaecomastia [Unknown]

NARRATIVE: CASE EVENT DATE: 20210101
